FAERS Safety Report 24693026 (Version 1)
Quarter: 2024Q4

REPORT INFORMATION
  Report Type: Spontaneous
  Country: CA (occurrence: CA)
  Receive Date: 20241203
  Receipt Date: 20241203
  Transmission Date: 20250115
  Serious: Yes (Other)
  Sender: MYLAN
  Company Number: CA-MYLANLABS-2024M1042481

PATIENT
  Sex: Male

DRUGS (2)
  1. REVATIO [Suspect]
     Active Substance: SILDENAFIL CITRATE
     Indication: Pulmonary hypertension
     Dosage: 6 MILLIGRAM, TID (THREE TIMES A DAY)
     Route: 048
  2. REVATIO [Suspect]
     Active Substance: SILDENAFIL CITRATE
     Indication: Heart disease congenital
     Dosage: 16 MILLIGRAM, TID (THREE TIMES A DAY)
     Route: 048
     Dates: start: 20240524

REACTIONS (1)
  - Off label use [Unknown]
